FAERS Safety Report 9967771 (Version 1)
Quarter: 2014Q1

REPORT INFORMATION
  Report Type: Report from Study
  Country: US (occurrence: US)
  Receive Date: 20140306
  Receipt Date: 20140306
  Transmission Date: 20141002
  Serious: No
  Sender: FDA-Public Use
  Company Number: US-ABBVIE-13P-163-1138296-00

PATIENT
  Age: 49 Year
  Sex: Male

DRUGS (7)
  1. HUMIRA [Suspect]
     Indication: ANKYLOSING SPONDYLITIS
     Dates: start: 20111120
  2. ATENOLOL [Concomitant]
     Indication: PALPITATIONS
     Dosage: 1/2 OF A 25G TABLET EVERYDAY
  3. ATENOLOL [Concomitant]
     Indication: HYPERTENSION
  4. COLCHICINE [Concomitant]
     Indication: FAMILIAL MEDITERRANEAN FEVER
  5. PREDNISONE EYE DROPS [Concomitant]
     Indication: EYE INFLAMMATION
  6. HYDROCODONE [Concomitant]
     Indication: PRODUCT USED FOR UNKNOWN INDICATION
  7. IBUPROFEN [Concomitant]
     Indication: PRODUCT USED FOR UNKNOWN INDICATION

REACTIONS (1)
  - Injection site haemorrhage [Recovered/Resolved]
